FAERS Safety Report 10215646 (Version 1)
Quarter: 2014Q2

REPORT INFORMATION
  Report Type: Spontaneous
  Country: GB (occurrence: None)
  Receive Date: 20140602
  Receipt Date: 20140602
  Transmission Date: 20141212
  Serious: Yes (Other)
  Sender: FDA-Public Use
  Company Number: GB2014K1778SPO

PATIENT
  Age: 64 Year
  Sex: Female

DRUGS (3)
  1. LANSOPRAZOLE [Suspect]
     Indication: PRODUCT USED FOR UNKNOWN INDICATION
     Dates: start: 20140414, end: 20140414
  2. BISOPROLOL (BISOPROLOL) [Concomitant]
  3. DURAPHAT (SODIUM FLUORIDE) [Concomitant]

REACTIONS (10)
  - Body temperature increased [None]
  - Chest discomfort [None]
  - Dizziness [None]
  - Malaise [None]
  - Product substitution issue [None]
  - Reaction to colouring [None]
  - Wheezing [None]
  - Product substitution issue [None]
  - Product formulation issue [None]
  - Hypersensitivity [None]
